FAERS Safety Report 6135386-3 (Version None)
Quarter: 2009Q1

REPORT INFORMATION
  Report Type: 
  Country: None (occurrence: None)
  Receive Date: 20090327
  Receipt Date: 20090319
  Transmission Date: 20090719
  Serious: Yes (Hospitalization)
  Sender: FDA-Public Use
  Company Number: BR-JNJCH-2009007741

PATIENT
  Sex: Female
  Weight: 40 kg

DRUGS (1)
  1. LISTERINE VANILLA MINT [Suspect]
     Indication: DRUG USE FOR UNKNOWN INDICATION
     Dosage: TEXT:UNSPECIFIED
     Route: 048
     Dates: start: 20090319, end: 20090319

REACTIONS (5)
  - BREATH ODOUR [None]
  - FEELING DRUNK [None]
  - INCORRECT ROUTE OF DRUG ADMINISTRATION [None]
  - LOSS OF CONSCIOUSNESS [None]
  - POISONING [None]
